FAERS Safety Report 8082987-1 (Version None)
Quarter: 2012Q1

REPORT INFORMATION
  Report Type: 
  Country: None (occurrence: None)
  Receive Date: 20120127
  Receipt Date: 20110309
  Transmission Date: 20120608
  Serious: No
  Sender: FDA-Public Use
  Company Number: US-ABBOTT-11P-163-0710499-00

PATIENT
  Sex: Male

DRUGS (1)
  1. HUMIRA [Suspect]
     Indication: CROHN'S DISEASE
     Dosage: 160MG FIRST DOSE
     Route: 058
     Dates: start: 20110301, end: 20110301

REACTIONS (3)
  - ASTHENIA [None]
  - NAUSEA [None]
  - PALLOR [None]
